FAERS Safety Report 5051934-9 (Version None)
Quarter: 2006Q3

REPORT INFORMATION
  Report Type: 
  Country: None (occurrence: None)
  Receive Date: 20060711
  Receipt Date: 20060620
  Transmission Date: 20061208
  Serious: Yes (Hospitalization)
  Sender: FDA-Public Use
  Company Number: US200606004673

PATIENT
  Sex: Male

DRUGS (5)
  1. HUMALOG [Suspect]
     Indication: DIABETES MELLITUS
     Dates: start: 20011210
  2. GLYBURIDE [Concomitant]
  3. SYNTHROID [Concomitant]
  4. PRECOSE [Concomitant]
  5. LOPRESSOR [Concomitant]

REACTIONS (5)
  - EYE SWELLING [None]
  - PRURITUS [None]
  - RASH [None]
  - TOE AMPUTATION [None]
  - URTICARIA [None]
